FAERS Safety Report 19551753 (Version 2)
Quarter: 2021Q3

REPORT INFORMATION
  Report Type: Spontaneous
  Country: DE (occurrence: DE)
  Receive Date: 20210715
  Receipt Date: 20210805
  Transmission Date: 20211014
  Serious: Yes (Hospitalization, Other)
  Sender: FDA-Public Use
  Company Number: DE-AUROBINDO-AUR-APL-2021-029732

PATIENT
  Age: 25 Year
  Sex: Female
  Weight: 63 kg

DRUGS (8)
  1. ESOMEPRAZOLE. [Suspect]
     Active Substance: ESOMEPRAZOLE MAGNESIUM
     Indication: GASTRIC DISORDER
     Dosage: 20 MILLIGRAM (AS REQUIRED)
     Route: 048
     Dates: start: 201909, end: 201909
  2. ASTONIN H [Suspect]
     Active Substance: FLUDROCORTISONE
     Dosage: 0.2 MILLIGRAM, ONCE A DAY (0.2 MILLIGRAM, 1X/DAY:QD)
     Route: 048
     Dates: start: 202001
  3. NAUSEMA [Suspect]
     Active Substance: CYANOCOBALAMIN\PYRIDOXINE HYDROCHLORIDE\THIAMINE
     Indication: HYPEREMESIS GRAVIDARUM
     Dosage: UNK, 1X/DAY:QD
     Route: 048
     Dates: start: 201910
  4. FOLIC ACID. [Suspect]
     Active Substance: FOLIC ACID
     Indication: ALOPECIA
     Dosage: 3.6 GRAM, ONCE A DAY (3.6 GRAM, 1X/DAY:QD)
     Route: 048
     Dates: start: 202001
  5. ASTONIN H [Suspect]
     Active Substance: FLUDROCORTISONE
     Dosage: 0.15 MILLIGRAM, ONCE A DAY (0.15 MILLIGRAM, 1X/DAY:QD)
     Route: 048
     Dates: start: 20190927, end: 202001
  6. ASTONIN H [Suspect]
     Active Substance: FLUDROCORTISONE
     Indication: HYPOALDOSTERONISM
     Dosage: 0.1 MILLIGRAM, ONCE A DAY (0.1 MILLIGRAM, 1X/DAY:QD)
     Route: 048
     Dates: start: 201906, end: 20190926
  7. HYDROCORTISONE. [Suspect]
     Active Substance: HYDROCORTISONE
     Indication: ADRENAL INSUFFICIENCY
     Dosage: 20 MILLIGRAM, ONCE A DAY (20 MILLIGRAM, 1X/DAY:QD)
     Route: 048
     Dates: start: 201510, end: 20200225
  8. HYDROCORTISONE. [Suspect]
     Active Substance: HYDROCORTISONE
     Indication: ADDISON^S DISEASE
     Dosage: 25 MILLIGRAM, ONCE A DAY (25 MILLIGRAM, 1X/DAY:QD)
     Route: 048
     Dates: start: 20200226, end: 20200409

REACTIONS (2)
  - Exposure during pregnancy [Unknown]
  - Hyperemesis gravidarum [Recovered/Resolved]

NARRATIVE: CASE EVENT DATE: 20191029
